FAERS Safety Report 5957020-5 (Version None)
Quarter: 2008Q4

REPORT INFORMATION
  Report Type: 
  Country: None (occurrence: None)
  Receive Date: 20081118
  Receipt Date: 20080829
  Transmission Date: 20090506
  Serious: No
  Sender: FDA-Public Use
  Company Number: A0746354A

PATIENT
  Age: 78 Year
  Sex: Male
  Weight: 112 kg

DRUGS (4)
  1. COREG CR [Suspect]
     Indication: DRUG USE FOR UNKNOWN INDICATION
     Route: 048
     Dates: start: 20080801
  2. LANTUS [Suspect]
     Dosage: 27UNIT PER DAY
     Route: 058
     Dates: start: 20060101
  3. ENALAPRIL MALEATE [Concomitant]
  4. ERGOCALCIFEROL [Concomitant]

REACTIONS (3)
  - BLOOD GLUCOSE INCREASED [None]
  - DRUG INTERACTION [None]
  - WEIGHT DECREASED [None]
